APPROVED DRUG PRODUCT: GLUCAGON
Active Ingredient: GLUCAGON
Strength: 1MG/VIAL
Dosage Form/Route: INJECTABLE;INJECTION
Application: A214457 | Product #001 | TE Code: AP
Applicant: LUPIN LTD
Approved: Jul 22, 2025 | RLD: No | RS: No | Type: RX